FAERS Safety Report 19942257 (Version 3)
Quarter: 2021Q4

REPORT INFORMATION
  Report Type: Report from Study
  Country: GB (occurrence: GB)
  Receive Date: 20211012
  Receipt Date: 20211108
  Transmission Date: 20220303
  Serious: Yes (Other)
  Sender: FDA-Public Use
  Company Number: GB-SAREPTA THERAPEUTICS INC.-SRP2019-000478

PATIENT

DRUGS (8)
  1. CASIMERSEN [Suspect]
     Active Substance: CASIMERSEN
     Indication: Duchenne muscular dystrophy
     Dosage: 1050 MG, UNK
     Route: 042
     Dates: start: 20170907, end: 20190306
  2. CASIMERSEN [Suspect]
     Active Substance: CASIMERSEN
     Dosage: 1050 MG, UNK
     Route: 042
     Dates: start: 20190313, end: 20190319
  3. CASIMERSEN [Suspect]
     Active Substance: CASIMERSEN
     Dosage: 1050 MG, UNK
     Route: 042
     Dates: start: 20190403, end: 20190409
  4. CASIMERSEN [Suspect]
     Active Substance: CASIMERSEN
     Dosage: 1050 MG, UNK
     Route: 042
     Dates: start: 20190508
  5. PERINDOPRIL [Concomitant]
     Active Substance: PERINDOPRIL
     Indication: Product used for unknown indication
     Dosage: 4 MILLIGRAM, QD
     Route: 048
  6. DEFLAZACORT [Concomitant]
     Active Substance: DEFLAZACORT
     Indication: Product used for unknown indication
     Dosage: 24 MILLIGRAM, QD
     Route: 048
  7. RISEDRONATE SODIUM [Concomitant]
     Active Substance: RISEDRONATE SODIUM
     Indication: Product used for unknown indication
     Dosage: 35 MILLIGRAM, ONCE WEEKLY
     Route: 048
  8. VITAMIN D [Concomitant]
     Active Substance: VITAMIN D NOS
     Indication: Product used for unknown indication
     Dosage: 2000 INTERNATIONAL UNIT, QD

REACTIONS (1)
  - Urine protein/creatinine ratio increased [Recovered/Resolved]

NARRATIVE: CASE EVENT DATE: 20190227
